FAERS Safety Report 20080140 (Version 7)
Quarter: 2022Q1

REPORT INFORMATION
  Report Type: Other
  Country: CA (occurrence: None)
  Receive Date: 20211117
  Receipt Date: 20220127
  Transmission Date: 20220423
  Serious: Yes (Hospitalization, Other)
  Sender: FDA-Public Use
  Company Number: CA-ROCHE-2627438

PATIENT
  Age: 22 Year
  Sex: Female
  Weight: 43 kg

DRUGS (13)
  1. RITUXAN [Suspect]
     Active Substance: RITUXIMAB
     Indication: Kidney transplant rejection
     Route: 042
     Dates: start: 202003, end: 202004
  2. CELLCEPT [Suspect]
     Active Substance: MYCOPHENOLATE MOFETIL
     Indication: Kidney transplant rejection
     Dosage: BATCH/LOT NOT AVAILABLE AS NOT RECEIVED THROUGH RPAP.
     Route: 065
     Dates: start: 202003
  3. ACTEMRA [Suspect]
     Active Substance: TOCILIZUMAB
     Indication: Kidney transplant rejection
     Route: 042
     Dates: start: 20200707
  4. TACROLIMUS [Concomitant]
     Active Substance: TACROLIMUS
     Indication: Product used for unknown indication
  5. IRON [Concomitant]
     Active Substance: IRON
     Indication: Product used for unknown indication
  6. LINAGLIPTIN [Concomitant]
     Active Substance: LINAGLIPTIN
     Indication: Product used for unknown indication
  7. MAGNESIUM [Concomitant]
     Active Substance: MAGNESIUM
     Indication: Product used for unknown indication
  8. PREDNISONE [Concomitant]
     Active Substance: PREDNISONE
     Indication: Product used for unknown indication
  9. REPLAVITE (CANADA) [Concomitant]
     Indication: Product used for unknown indication
  10. SEPTRA [Concomitant]
     Active Substance: SULFAMETHOXAZOLE\TRIMETHOPRIM
     Indication: Product used for unknown indication
  11. VALCYTE [Concomitant]
     Active Substance: VALGANCICLOVIR HYDROCHLORIDE
     Indication: Product used for unknown indication
  12. ACTEMRA [Concomitant]
     Active Substance: TOCILIZUMAB
     Indication: Kidney transplant rejection
     Route: 042
     Dates: start: 20200707
  13. FOSFOMYCIN [Concomitant]
     Active Substance: FOSFOMYCIN

REACTIONS (11)
  - Kidney transplant rejection [Unknown]
  - Pyelonephritis [Recovered/Resolved]
  - Urinary tract infection [Not Recovered/Not Resolved]
  - Kidney infection [Unknown]
  - Off label use [Unknown]
  - Heart rate increased [Unknown]
  - Fungal infection [Unknown]
  - Musculoskeletal discomfort [Recovered/Resolved]
  - Blood pressure diastolic increased [Unknown]
  - Nervousness [Unknown]
  - Off label use [Unknown]

NARRATIVE: CASE EVENT DATE: 20200805
